FAERS Safety Report 24432063 (Version 2)
Quarter: 2024Q4

REPORT INFORMATION
  Report Type: Spontaneous
  Country: US (occurrence: US)
  Receive Date: 20241014
  Receipt Date: 20241023
  Transmission Date: 20250115
  Serious: Yes (Death, Life-Threatening, Hospitalization, Other)
  Sender: AUROBINDO
  Company Number: US-MLMSERVICE-20240923-PI202506-00331-1

PATIENT
  Age: 68 Year
  Sex: Female

DRUGS (2)
  1. LISINOPRIL [Interacting]
     Active Substance: LISINOPRIL
     Indication: Hypertension
     Dosage: UNK
     Route: 065
  2. VERAPAMIL HYDROCHLORIDE [Interacting]
     Active Substance: VERAPAMIL HYDROCHLORIDE
     Indication: Hypertension
     Dosage: MISSING VERAPAMIL SR 240 MG BOTTLE DESPITE A RECENT REFILL SUSTAINED RELEASE
     Route: 065

REACTIONS (7)
  - BRASH syndrome [Fatal]
  - Intestinal ischaemia [Fatal]
  - Blood lactic acid increased [Fatal]
  - Bundle branch block left [Fatal]
  - Atrioventricular dissociation [Fatal]
  - Drug interaction [Fatal]
  - Intentional overdose [Fatal]
